APPROVED DRUG PRODUCT: LEVETIRACETAM
Active Ingredient: LEVETIRACETAM
Strength: 100MG/ML
Dosage Form/Route: SOLUTION;ORAL
Application: A203067 | Product #001 | TE Code: AA
Applicant: ALEMBIC PHARMACEUTICALS LTD
Approved: May 9, 2013 | RLD: No | RS: No | Type: RX